FAERS Safety Report 8257701-7 (Version None)
Quarter: 2012Q2

REPORT INFORMATION
  Report Type: 
  Country: None (occurrence: None)
  Receive Date: 20120403
  Receipt Date: 20120321
  Transmission Date: 20120825
  Serious: Yes (Other)
  Sender: FDA-Public Use
  Company Number: US-MYLANLABS-2012S1006495

PATIENT
  Age: 83 Year
  Sex: Male

DRUGS (10)
  1. AMIODARONE HCL [Suspect]
     Indication: ATRIAL FIBRILLATION
     Route: 065
     Dates: start: 20030301
  2. RIFAMPICIN [Interacting]
     Indication: BOVINE TUBERCULOSIS
     Route: 065
  3. RIFAMPICIN [Interacting]
     Indication: TUBERCULOSIS
     Route: 065
  4. REPAGLINIDE [Concomitant]
     Route: 065
  5. NIFEDIPINE [Concomitant]
     Route: 065
  6. SIMVASTATIN [Concomitant]
     Route: 065
  7. TAMSULOSIN HCL [Concomitant]
     Route: 065
  8. ISONIAZID [Concomitant]
     Indication: TUBERCULOSIS
     Route: 065
  9. ATENOLOL [Concomitant]
     Route: 065
  10. ISONIAZID [Concomitant]
     Indication: BOVINE TUBERCULOSIS
     Route: 065

REACTIONS (5)
  - DRUG INTERACTION [None]
  - DRUG LEVEL DECREASED [None]
  - THERAPEUTIC RESPONSE DECREASED [None]
  - KERATOPATHY [None]
  - PALPITATIONS [None]
